FAERS Safety Report 12409275 (Version 1)
Quarter: 2016Q2

REPORT INFORMATION
  Report Type: Other
  Country: DE (occurrence: CH)
  Receive Date: 20160526
  Receipt Date: 20160526
  Transmission Date: 20160815
  Serious: Yes (Hospitalization)
  Sender: FDA-Public Use
  Company Number: CH-MERZ NORTH AMERICA, INC.-16MRZ-00311

PATIENT
  Age: 78 Year
  Sex: Male

DRUGS (1)
  1. ASCLERA [Suspect]
     Active Substance: POLIDOCANOL
     Indication: VARICOSE VEIN
     Dosage: 12ML BY FOUR INJECTIONS OF 3ML FOAM EACH THROUGH 2 PUNCTURE SITES ALONG THE GSV
     Route: 042

REACTIONS (2)
  - Acute myocardial infarction [None]
  - Angina pectoris [None]
